FAERS Safety Report 14210338 (Version 1)
Quarter: 2017Q4

REPORT INFORMATION
  Report Type: Spontaneous
  Country: MY (occurrence: TR)
  Receive Date: 20171121
  Receipt Date: 20171121
  Transmission Date: 20180321
  Serious: Yes (Other)
  Sender: FDA-Public Use
  Company Number: MY-PFIZER INC-2017499966

PATIENT
  Age: 53 Year
  Sex: Female

DRUGS (2)
  1. CLARINASE [Concomitant]
     Active Substance: LORATADINE\PSEUDOEPHEDRINE SULFATE
     Indication: ANTIALLERGIC THERAPY
     Dosage: 1 DF, UNK
  2. CELEBREX [Suspect]
     Active Substance: CELECOXIB
     Indication: PAIN
     Dosage: 200 MG, UNK

REACTIONS (2)
  - Loss of consciousness [Unknown]
  - Dizziness [Unknown]
